FAERS Safety Report 5305330-7 (Version None)
Quarter: 2007Q2

REPORT INFORMATION
  Report Type: 
  Country: None (occurrence: None)
  Receive Date: 20070424
  Receipt Date: 20070411
  Transmission Date: 20071010
  Serious: Yes (Other)
  Sender: FDA-Public Use
  Company Number: PHBS2007BR06573

PATIENT
  Age: 4 Year
  Sex: Male
  Weight: 20 kg

DRUGS (2)
  1. TEGRETOL [Suspect]
     Dosage: 5 ML, QHS
     Route: 048
  2. TEGRETOL [Suspect]
     Dosage: 20 ML, ONCE/SINGLE
     Route: 048
     Dates: start: 20070411, end: 20070411

REACTIONS (4)
  - ACCIDENTAL OVERDOSE [None]
  - DIZZINESS [None]
  - SOMNOLENCE [None]
  - VOMITING [None]
